FAERS Safety Report 13514741 (Version 2)
Quarter: 2018Q1

REPORT INFORMATION
  Report Type: Spontaneous
  Country: FR (occurrence: FR)
  Receive Date: 20170504
  Receipt Date: 20180316
  Transmission Date: 20180508
  Serious: Yes (Other)
  Sender: FDA-Public Use
  Company Number: FR-ALLERGAN-1716961US

PATIENT
  Sex: Male

DRUGS (1)
  1. ESCITALOPRAM OXALATE - BP [Suspect]
     Active Substance: ESCITALOPRAM OXALATE
     Indication: PRODUCT USED FOR UNKNOWN INDICATION
     Dosage: 10 MG, QD
     Route: 064

REACTIONS (7)
  - Bradycardia [Recovered/Resolved]
  - Hypotonia neonatal [Recovered/Resolved]
  - Premature baby [Unknown]
  - Neonatal respiratory distress [Recovered/Resolved]
  - Tachycardia foetal [Recovered/Resolved]
  - Electrocardiogram QT prolonged [Recovered/Resolved]
  - Foetal exposure during pregnancy [Unknown]
